FAERS Safety Report 19633304 (Version 1)
Quarter: 2021Q3

REPORT INFORMATION
  Report Type: Spontaneous
  Country: US (occurrence: US)
  Receive Date: 20210730
  Receipt Date: 20210730
  Transmission Date: 20211014
  Serious: No
  Sender: FDA-Public Use
  Company Number: US-TEVA-2021-US-1935503

PATIENT

DRUGS (1)
  1. BUSPIRONE HYDROCHLORIDE. [Suspect]
     Active Substance: BUSPIRONE HYDROCHLORIDE
     Route: 048

REACTIONS (5)
  - Frustration tolerance decreased [Unknown]
  - Feeling abnormal [Unknown]
  - Incorrect disposal of product [Unknown]
  - Catastrophic reaction [Unknown]
  - Anger [Unknown]
